FAERS Safety Report 24318255 (Version 1)
Quarter: 2024Q3

REPORT INFORMATION
  Report Type: Spontaneous
  Country: US (occurrence: None)
  Receive Date: 20240913
  Receipt Date: 20240913
  Transmission Date: 20241016
  Serious: Yes (Other)
  Sender: ASTRAZENECA
  Company Number: 2024A203109

PATIENT

DRUGS (8)
  1. BREZTRI [Suspect]
     Active Substance: BUDESONIDE\FORMOTEROL\GLYCOPYRROLATE
     Dosage: UNKNOWN UNKNOWN
     Route: 055
  2. SYMBICORT [Suspect]
     Active Substance: BUDESONIDE\FORMOTEROL FUMARATE DIHYDRATE
     Route: 055
  3. LISINOPRIL [Suspect]
     Active Substance: LISINOPRIL
     Route: 048
  4. VENTOLIN [Concomitant]
     Active Substance: ALBUTEROL SULFATE
  5. PREDNISONE [Concomitant]
     Active Substance: PREDNISONE
  6. TRAZODONE [Concomitant]
     Active Substance: TRAZODONE HYDROCHLORIDE
  7. BENZONATATE [Concomitant]
     Active Substance: BENZONATATE
  8. FLUPHENAZINE [Concomitant]
     Active Substance: FLUPHENAZINE

REACTIONS (12)
  - Pulmonary mass [Unknown]
  - Fall [Unknown]
  - Swelling face [Unknown]
  - Tongue coated [Unknown]
  - Tongue disorder [Unknown]
  - Dizziness [Unknown]
  - Eye swelling [Unknown]
  - Visual impairment [Unknown]
  - Hypotension [Unknown]
  - Pain [Unknown]
  - Cough [Unknown]
  - Insurance issue [Unknown]
